FAERS Safety Report 9508206 (Version 1)
Quarter: 2013Q3

REPORT INFORMATION
  Report Type: Spontaneous
  Country: US (occurrence: US)
  Receive Date: 20130909
  Receipt Date: 20130909
  Transmission Date: 20140515
  Serious: No
  Sender: FDA-Public Use
  Company Number: US-PFIZER INC-2013257382

PATIENT
  Sex: Female

DRUGS (1)
  1. LYRICA [Suspect]
     Indication: COUGH
     Dosage: UNK

REACTIONS (6)
  - Off label use [Unknown]
  - Gait disturbance [Unknown]
  - Bone pain [Unknown]
  - Myalgia [Unknown]
  - Drug ineffective for unapproved indication [Unknown]
  - Drug effect incomplete [Unknown]
